FAERS Safety Report 24091626 (Version 1)
Quarter: 2024Q3

REPORT INFORMATION
  Report Type: Spontaneous
  Country: US (occurrence: None)
  Receive Date: 20240713
  Receipt Date: 20240713
  Transmission Date: 20241017
  Serious: Yes (Hospitalization)
  Sender: Public
  Company Number: None

PATIENT
  Age: 16 Year
  Sex: Male
  Weight: 56.4 kg

DRUGS (1)
  1. BLEOMYCIN [Suspect]
     Active Substance: BLEOMYCIN SULFATE
     Dates: start: 20240704, end: 20240706

REACTIONS (1)
  - Seizure [None]

NARRATIVE: CASE EVENT DATE: 20240706
